FAERS Safety Report 14253966 (Version 2)
Quarter: 2018Q1

REPORT INFORMATION
  Report Type: Spontaneous
  Country: DE (occurrence: DE)
  Receive Date: 20171205
  Receipt Date: 20180103
  Transmission Date: 20180508
  Serious: Yes (Hospitalization)
  Sender: FDA-Public Use
  Company Number: DE-MYLANLABS-2017M1075681

PATIENT
  Sex: Female
  Weight: 110 kg

DRUGS (21)
  1. OPIPRAMOL SANDOZ [Suspect]
     Active Substance: OPIPRAMOL
     Indication: DEPRESSION
     Dosage: 2 MG, QD
     Route: 048
     Dates: start: 2016
  2. FLUCONAZOL [Concomitant]
     Active Substance: FLUCONAZOLE
     Indication: ONYCHOMYCOSIS
     Dosage: 150 MG, QD
     Route: 048
     Dates: start: 20160704
  3. AMLODIPIN                          /00972401/ [Concomitant]
     Active Substance: AMLODIPINE BESYLATE
     Indication: HYPERTENSION
     Dosage: 10 MG, QD
     Route: 048
  4. BISOPROLOL [Concomitant]
     Active Substance: BISOPROLOL
     Indication: HYPERTENSION
     Dosage: 5 MG, QD
     Route: 048
  5. LEMOCIN [Concomitant]
     Indication: PROPHYLAXIS
     Dosage: 2 MG, PRN
     Route: 048
  6. L-THYROXIN BETA [Concomitant]
     Indication: GOITRE
     Dosage: 125 MG, QD
     Route: 048
  7. TILIDIN [Concomitant]
     Active Substance: NALOXONE HYDROCHLORIDE\TILIDINE HYDROCHLORIDE
     Indication: METASTASES TO BONE
     Dosage: 50 MG, TID (150 MG)
     Route: 048
     Dates: start: 20160912
  8. VITAMIN B COMPLEX [Concomitant]
     Active Substance: CYANOCOBALAMIN\DEXPANTHENOL\NIACINAMIDE\PYRIDOXINE HYDROCHLORIDE\RIBOFLAVIN 5^-PHOSPHATE SODIUM\THIAMINE HYDROCHLORIDE\VITAMIN B COMPLEX
     Indication: PROPHYLAXIS
     Dosage: 100 MG, BID
     Route: 048
     Dates: start: 20160912
  9. INSULIN [Concomitant]
     Active Substance: INSULIN NOS
     Indication: DIABETES MELLITUS
     Dosage: UNK, PRN
     Route: 058
  10. TUMAROL [Concomitant]
     Indication: DEPRESSION
     Dosage: 1 G, BID
     Route: 055
     Dates: start: 20160912
  11. CAPECITABINE. [Suspect]
     Active Substance: CAPECITABINE
     Indication: BREAST CANCER
     Dosage: 3000 MG, UNK
     Route: 048
  12. LEVODOPA [Concomitant]
     Active Substance: LEVODOPA
     Indication: DEPRESSION
     Dosage: 100 MG, QD
     Route: 048
     Dates: start: 20150924, end: 20160704
  13. METFORMIN [Concomitant]
     Active Substance: METFORMIN HYDROCHLORIDE
     Indication: DIABETES MELLITUS
     Dosage: 1000 MG, QD
     Route: 048
     Dates: start: 20151016
  14. JANUVIA [Concomitant]
     Active Substance: SITAGLIPTIN PHOSPHATE
     Indication: DIABETES MELLITUS
     Dosage: 25 MG, QD
     Route: 048
  15. ZOMETA [Concomitant]
     Active Substance: ZOLEDRONIC ACID
     Indication: METASTASES TO BONE
     Dosage: 4 MG, MONTHLY
     Route: 042
     Dates: start: 20151016
  16. VIGANTOLETTEN [Concomitant]
     Active Substance: CHOLECALCIFEROL
     Indication: PROPHYLAXIS
     Dosage: 1000 IU, QD
     Route: 048
     Dates: start: 20160912
  17. BEVACIZUMAB. [Suspect]
     Active Substance: BEVACIZUMAB
     Indication: BREAST CANCER
     Dosage: 1650 MG, UNK
     Route: 042
  18. PREGABALIN. [Concomitant]
     Active Substance: PREGABALIN
     Indication: PERIPHERAL SENSORY NEUROPATHY
     Dosage: 25 MG, BID (50 MG)
     Route: 048
     Dates: start: 20151102
  19. OPIPRAMOL SANDOZ [Suspect]
     Active Substance: OPIPRAMOL
     Dosage: 100 MG, QD
     Dates: start: 2016
  20. CANDESARTAN. [Concomitant]
     Active Substance: CANDESARTAN
     Indication: HYPERTENSION
     Dosage: 16 MG, QD
     Route: 048
  21. FASLODEX [Concomitant]
     Active Substance: FULVESTRANT
     Indication: METASTASES TO BONE
     Dosage: 500 MG, MONTHLY
     Route: 030
     Dates: start: 20160930

REACTIONS (2)
  - Major depression [Recovered/Resolved]
  - Delirium [Recovered/Resolved]

NARRATIVE: CASE EVENT DATE: 20160819
